FAERS Safety Report 8461570-X (Version None)
Quarter: 2012Q2

REPORT INFORMATION
  Report Type: 
  Country: None (occurrence: None)
  Receive Date: 20120625
  Receipt Date: 20120620
  Transmission Date: 20120825
  Serious: Yes (Death, Other)
  Sender: FDA-Public Use
  Company Number: PHEH2012US010953

PATIENT
  Sex: Female

DRUGS (4)
  1. PROZAC [Concomitant]
     Dosage: 10 MG, UNK
  2. TASIGNA [Suspect]
     Dosage: 150 MG, UNK
     Route: 048
  3. HYDROCHLOROTHIAZIDE [Concomitant]
     Dosage: 10 MG, UNK
  4. GLEEVEC [Suspect]
     Dosage: 400 MG, UNK
     Route: 048

REACTIONS (2)
  - ADENOCARCINOMA [None]
  - DEATH [None]
